FAERS Safety Report 20456011 (Version 1)
Quarter: 2022Q1

REPORT INFORMATION
  Report Type: Spontaneous
  Country: US (occurrence: None)
  Receive Date: 20220210
  Receipt Date: 20220210
  Transmission Date: 20220423
  Serious: No
  Sender: FDA-Public Use
  Company Number: None

PATIENT
  Age: 82 Year
  Sex: Male
  Weight: 127 kg

DRUGS (1)
  1. LATANOPROST [Suspect]
     Active Substance: LATANOPROST
     Indication: Glaucoma
     Dosage: 1 DROPS AT BEDTIMA EYE?
     Dates: start: 20190211, end: 20211107

REACTIONS (1)
  - Instillation site erythema [None]

NARRATIVE: CASE EVENT DATE: 20211027
